FAERS Safety Report 5903212-0 (Version None)
Quarter: 2008Q3

REPORT INFORMATION
  Report Type: 
  Country: None (occurrence: None)
  Receive Date: 20080926
  Receipt Date: 20080912
  Transmission Date: 20090109
  Serious: Yes (Hospitalization, Other)
  Sender: FDA-Public Use
  Company Number: JPI-P-004006

PATIENT
  Age: 70 Year
  Sex: Female

DRUGS (13)
  1. LUVOX [Suspect]
     Indication: DEPRESSION
     Dosage: 50 MG (50 MG, 1 IN 1 D), ORAL, 100 MG (100 MG, 1 IN 1 D), ORAL, 75 MG (75MG, 1 IN 1 D), ORAL
     Route: 048
     Dates: start: 20060118, end: 20060122
  2. LUVOX [Suspect]
     Indication: DEPRESSION
     Dosage: 50 MG (50 MG, 1 IN 1 D), ORAL, 100 MG (100 MG, 1 IN 1 D), ORAL, 75 MG (75MG, 1 IN 1 D), ORAL
     Route: 048
     Dates: start: 20060123, end: 20060207
  3. LUVOX [Suspect]
     Indication: DEPRESSION
     Dosage: 50 MG (50 MG, 1 IN 1 D), ORAL, 100 MG (100 MG, 1 IN 1 D), ORAL, 75 MG (75MG, 1 IN 1 D), ORAL
     Route: 048
     Dates: start: 20060208, end: 20080527
  4. DOSULEPIN HYDROCHLORIDE (DOSULEPIN HYDROCHLORIDE) [Suspect]
     Indication: DEPRESSION
     Dosage: 25 MG (25 MG, 1 IN 1 D), ORAL, 75 MG (75 MG, 1 IN 1 D), ORAL, 25 MG (25 MG, 1 IN 1 D), ORAL
     Route: 048
     Dates: start: 20060123, end: 20060124
  5. DOSULEPIN HYDROCHLORIDE (DOSULEPIN HYDROCHLORIDE) [Suspect]
     Indication: DEPRESSION
     Dosage: 25 MG (25 MG, 1 IN 1 D), ORAL, 75 MG (75 MG, 1 IN 1 D), ORAL, 25 MG (25 MG, 1 IN 1 D), ORAL
     Route: 048
     Dates: start: 20060125, end: 20060207
  6. DOSULEPIN HYDROCHLORIDE (DOSULEPIN HYDROCHLORIDE) [Suspect]
     Indication: DEPRESSION
     Dosage: 25 MG (25 MG, 1 IN 1 D), ORAL, 75 MG (75 MG, 1 IN 1 D), ORAL, 25 MG (25 MG, 1 IN 1 D), ORAL
     Route: 048
     Dates: start: 20060208, end: 20061205
  7. ETHYL LOFLAZEPATE (ETHYL LOFLAZEPATE) [Concomitant]
  8. FLUNITRAZEPAM (FLUNITRAZEPAM) [Concomitant]
  9. NON-PYRINE COLD PREPARATION [Concomitant]
  10. TRANEXAMIC ACID (TRANEXAMIC ACID) [Concomitant]
  11. FOMINOBEN HYDROCHLORIDE (FOMINOBEN HYDROCHLORIDE) [Concomitant]
  12. SULPIRIDE (SULPIRIDE) [Concomitant]
  13. TRAZODONE HCL [Concomitant]

REACTIONS (18)
  - ANOREXIA [None]
  - ANXIETY [None]
  - APATHY [None]
  - BALANCE DISORDER [None]
  - BRAIN OEDEMA [None]
  - CONDITION AGGRAVATED [None]
  - DELIRIUM [None]
  - DELUSION [None]
  - DEPRESSION [None]
  - DIZZINESS [None]
  - DIZZINESS POSTURAL [None]
  - DRUG INTERACTION [None]
  - FALL [None]
  - HALLUCINATION [None]
  - INSOMNIA [None]
  - LAZINESS [None]
  - MOOD SWINGS [None]
  - PSYCHIATRIC SYMPTOM [None]
